FAERS Safety Report 26094569 (Version 2)
Quarter: 2025Q4

REPORT INFORMATION
  Report Type: Report from Study
  Country: CA (occurrence: CA)
  Receive Date: 20251126
  Receipt Date: 20251223
  Transmission Date: 20260118
  Serious: Yes (Other)
  Sender: PFIZER
  Company Number: CA-PFIZER INC-202500099069

PATIENT
  Age: 72 Year
  Sex: Female
  Weight: 71.2 kg

DRUGS (8)
  1. IXIFI [Suspect]
     Active Substance: INFLIXIMAB-QBTX
     Indication: Crohn^s disease
     Dosage: 800 MG, EVERY 4 WEEKS
     Route: 042
     Dates: start: 20250827
  2. IXIFI [Suspect]
     Active Substance: INFLIXIMAB-QBTX
     Dosage: 800 MG, EVERY 4 WEEKS
     Route: 042
     Dates: start: 20250925
  3. IXIFI [Suspect]
     Active Substance: INFLIXIMAB-QBTX
     Dosage: 800 MG, EVERY 4 WEEKS (ACTUAL 3 WEEKS AND 6 DAYS)
     Route: 042
     Dates: start: 20251022
  4. IXIFI [Suspect]
     Active Substance: INFLIXIMAB-QBTX
     Dosage: 800 MG, EVERY 4 WEEKS (ACTUAL 3 WEEKS AND 6 DAYS)
     Route: 042
     Dates: start: 20251022
  5. IXIFI [Suspect]
     Active Substance: INFLIXIMAB-QBTX
     Dosage: 800 MG, EVERY 4 WEEKS (ACTUAL AFTER 4 WEEKS AND 1 DAY)
     Route: 042
     Dates: start: 20251120
  6. IXIFI [Suspect]
     Active Substance: INFLIXIMAB-QBTX
     Dosage: 800 MG, EVERY 4 WEEKS
     Route: 042
     Dates: start: 20251217
  7. PREDNISONE [Concomitant]
     Active Substance: PREDNISONE
     Dosage: UNK
  8. SKYRIZI [Concomitant]
     Active Substance: RISANKIZUMAB-RZAA
     Indication: Crohn^s disease
     Dosage: UNK
     Dates: start: 2025

REACTIONS (8)
  - Tooth extraction [Unknown]
  - Condition aggravated [Not Recovered/Not Resolved]
  - Off label use [Unknown]
  - Off label use [Unknown]
  - Off label use [Unknown]
  - Intentional product use issue [Unknown]
  - Off label use [Unknown]
  - Product use issue [Unknown]

NARRATIVE: CASE EVENT DATE: 20250101
